FAERS Safety Report 7954913-4 (Version None)
Quarter: 2011Q4

REPORT INFORMATION
  Report Type: 
  Country: None (occurrence: None)
  Receive Date: 20111202
  Receipt Date: 20111125
  Transmission Date: 20120403
  Serious: Yes (Other)
  Sender: FDA-Public Use
  Company Number: US-B.I. PHARMACEUTICALS,INC./RIDGEFIELD-2011-EU-00783GD

PATIENT
  Age: 61 Year
  Sex: Male

DRUGS (8)
  1. ABACAVIR [Concomitant]
     Indication: HIV INFECTION
  2. ATAZANAVIR/RITONAVIR [Concomitant]
     Indication: HIV INFECTION
  3. TRAZODONE HCL [Concomitant]
  4. GEMFIBROZIL [Concomitant]
  5. NEVIRAPINE [Suspect]
     Indication: HIV INFECTION
  6. RANITIDINE [Concomitant]
  7. GABAPENTIN [Concomitant]
  8. LISINOPRIL [Concomitant]

REACTIONS (3)
  - HEPATITIS ACUTE [None]
  - CHOLESTASIS [None]
  - JAUNDICE [None]
